FAERS Safety Report 8085286-7 (Version None)
Quarter: 2012Q1

REPORT INFORMATION
  Report Type: 
  Country: None (occurrence: None)
  Receive Date: 20120128
  Receipt Date: 20110321
  Transmission Date: 20120608
  Serious: No
  Sender: FDA-Public Use
  Company Number: US-ABBOTT-11P-163-0713434-00

PATIENT
  Sex: Female

DRUGS (10)
  1. HUMIRA [Suspect]
     Indication: PRODUCT USED FOR UNKNOWN INDICATION
     Dates: start: 20070101
  2. METFFORMIN HYDROCHLORIDE [Concomitant]
     Indication: DIABETES MELLITUS
  3. ESTROGENIC SUBSTANCE [Concomitant]
     Indication: HORMONE REPLACEMENT THERAPY
  4. NEXIUM [Concomitant]
     Indication: GASTROOESOPHAGEAL REFLUX DISEASE
  5. DAYPRO [Concomitant]
     Indication: PAIN
  6. MAXZIDE [Concomitant]
     Indication: HYPERTENSION
  7. PRAVASTATIN [Concomitant]
     Indication: BLOOD CHOLESTEROL INCREASED
  8. NASONEX [Concomitant]
     Indication: HYPERSENSITIVITY
  9. ZOLPIDEM [Concomitant]
     Indication: INSOMNIA
  10. CARTIA XT [Concomitant]
     Indication: HYPERTENSION

REACTIONS (1)
  - SINUSITIS [None]
